FAERS Safety Report 25844221 (Version 1)
Quarter: 2025Q3

REPORT INFORMATION
  Report Type: Other
  Country: ZA (occurrence: ZA)
  Receive Date: 20250925
  Receipt Date: 20250925
  Transmission Date: 20251021
  Serious: Yes (Other)
  Sender: DEXCEL LTD.
  Company Number: ZA-DEXPHARM-2025-4629

PATIENT
  Age: 45 Year
  Sex: Female

DRUGS (1)
  1. DEXAMETHASONE [Suspect]
     Active Substance: DEXAMETHASONE
     Dosage: DEXAMETHASONE (40 MG WEEKLY

REACTIONS (1)
  - Osteonecrosis of jaw [Unknown]
